FAERS Safety Report 15183384 (Version 1)
Quarter: 2018Q3

REPORT INFORMATION
  Report Type: Spontaneous
  Country: US (occurrence: US)
  Receive Date: 20180723
  Receipt Date: 20180723
  Transmission Date: 20181010
  Serious: No
  Sender: FDA-Public Use
  Company Number: US-LEXICON PHARMACEUTICALS, INC-18-1606-00803

PATIENT
  Age: 71 Year
  Sex: Female

DRUGS (1)
  1. TELOTRISTAT ETHYL [Suspect]
     Active Substance: TELOTRISTAT ETHYL
     Indication: METASTASES TO LIVER
     Route: 048
     Dates: start: 20180608, end: 201806

REACTIONS (1)
  - Constipation [Not Recovered/Not Resolved]

NARRATIVE: CASE EVENT DATE: 201806
